FAERS Safety Report 10472675 (Version 1)
Quarter: 2014Q3

REPORT INFORMATION
  Report Type: Spontaneous
  Country: US (occurrence: None)
  Receive Date: 20140922
  Receipt Date: 20140922
  Transmission Date: 20150326
  Serious: Yes (Other)
  Sender: FDA-Public Use
  Company Number: 2014-US-010167

PATIENT
  Age: 49 Year
  Sex: Female

DRUGS (2)
  1. XYREM [Suspect]
     Active Substance: SODIUM OXYBATE
     Indication: INSOMNIA
     Route: 048
     Dates: start: 201207
  2. TESTOSTERONE (TESTOSTERONE ENANTHATE) [Concomitant]

REACTIONS (4)
  - Cataract [None]
  - Off label use [None]
  - Dry eye [None]
  - Vision blurred [None]

NARRATIVE: CASE EVENT DATE: 2013
